FAERS Safety Report 12936193 (Version 1)
Quarter: 2016Q4

REPORT INFORMATION
  Report Type: Spontaneous
  Country: US (occurrence: US)
  Receive Date: 20161112
  Receipt Date: 20161112
  Transmission Date: 20170207
  Serious: Yes (Hospitalization)
  Sender: FDA-Public Use
  Company Number: None

PATIENT
  Age: 74 Year
  Sex: Male
  Weight: 39.2 kg

DRUGS (2)
  1. LEUPROLIDE ACETATE. [Suspect]
     Active Substance: LEUPROLIDE ACETATE
     Dates: end: 20160429
  2. CASODEX [Suspect]
     Active Substance: BICALUTAMIDE
     Dates: end: 20161012

REACTIONS (7)
  - Pneumonia [None]
  - Respiratory distress [None]
  - Leukoencephalopathy [None]
  - Cough [None]
  - Breath sounds abnormal [None]
  - Wheezing [None]
  - Seizure [None]

NARRATIVE: CASE EVENT DATE: 20161026
